FAERS Safety Report 8704528 (Version 2)
Quarter: 2012Q4

REPORT INFORMATION
  Report Type: 
  Country: US (occurrence: US)
  Receive Date: 20120803
  Receipt Date: 20121026
  Transmission Date: 20130627
  Serious: Yes (Other)
  Sender: FDA-Public Use
  Company Number: PHEH2012US015015

PATIENT
  Age: 51 Year
  Sex: Female
  Weight: 63.49 kg

DRUGS (10)
  1. GILENYA [Suspect]
     Indication: RELAPSING-REMITTING MULTIPLE SCLEROSIS
     Dosage: 0.5 mg, QD
     Route: 048
     Dates: start: 201101
  2. CALCIUM WITH VITAMIN D [Concomitant]
     Dosage: 50 mg, calcium 600/ Vit D 400 mg,
  3. LYRICA [Concomitant]
     Dosage: 50 mg, 1xday
     Route: 048
  4. CELEBREX [Concomitant]
     Dosage: 200 mg, 1xday
     Route: 048
  5. TAMSULOSIN [Concomitant]
     Route: 048
  6. AMPYRA [Concomitant]
     Route: 048
  7. VITAMIN D [Concomitant]
     Dosage: 1000 U, UNK
  8. KLONOPIN [Concomitant]
     Dosage: 0.5 mg, UNK
  9. ELAVIL [Concomitant]
     Dosage: 25 mg, UNK
  10. AMBIEN [Concomitant]
     Dosage: 10 mg, UNK

REACTIONS (3)
  - Ligament rupture [Unknown]
  - Contusion [Unknown]
  - Fall [Unknown]
